FAERS Safety Report 25785841 (Version 2)
Quarter: 2025Q3

REPORT INFORMATION
  Report Type: Spontaneous
  Country: KR (occurrence: KR)
  Receive Date: 20250910
  Receipt Date: 20250916
  Transmission Date: 20251020
  Serious: Yes (Hospitalization)
  Sender: MYLAN
  Company Number: KR-MYLANLABS-2025M1075303

PATIENT
  Sex: Male

DRUGS (3)
  1. CLOZARIL [Suspect]
     Active Substance: CLOZAPINE
     Indication: Schizophrenia
     Dosage: 150 MILLIGRAM, QD (PER DAY, START DATE: 25-JUL-2025)
     Dates: end: 20250828
  2. CLOZARIL [Suspect]
     Active Substance: CLOZAPINE
     Dosage: 75 MILLIGRAM, QD (PER DAY, START DATE: AUG-2025)
     Dates: end: 20250831
  3. CLOZARIL [Suspect]
     Active Substance: CLOZAPINE

REACTIONS (1)
  - Bell^s palsy [Recovered/Resolved with Sequelae]

NARRATIVE: CASE EVENT DATE: 20250101
